FAERS Safety Report 15974421 (Version 1)
Quarter: 2019Q1

REPORT INFORMATION
  Report Type: Report from Study
  Country: PH (occurrence: PH)
  Receive Date: 20190218
  Receipt Date: 20190218
  Transmission Date: 20190418
  Serious: Yes (Other)
  Sender: FDA-Public Use
  Company Number: PH-ROCHE-2261948

PATIENT
  Age: 70 Year
  Sex: Male
  Weight: 69.6 kg

DRUGS (3)
  1. METHYLPREDNISOLONE. [Concomitant]
     Active Substance: METHYLPREDNISOLONE
  2. PREDNISOLONE. [Concomitant]
     Active Substance: PREDNISOLONE
  3. ATEZOLIZUMAB. [Suspect]
     Active Substance: ATEZOLIZUMAB
     Indication: NON-SMALL CELL LUNG CANCER
     Route: 042
     Dates: start: 20190104, end: 20190104

REACTIONS (9)
  - Supraventricular tachycardia [Recovered/Resolved]
  - Electrocardiogram ST segment elevation [Unknown]
  - Troponin increased [Recovered/Resolved]
  - Hepatitis [Recovered/Resolved]
  - Bronchitis [Recovered/Resolved]
  - Gastritis [Recovered/Resolved]
  - Metastases to bone [Unknown]
  - Fibrin D dimer increased [Recovering/Resolving]
  - White blood cell count increased [Unknown]

NARRATIVE: CASE EVENT DATE: 20190111
